FAERS Safety Report 6035635-6 (Version None)
Quarter: 2009Q1

REPORT INFORMATION
  Report Type: 
  Country: None (occurrence: None)
  Receive Date: 20090113
  Receipt Date: 20090106
  Transmission Date: 20090719
  Serious: Yes (Other)
  Sender: FDA-Public Use
  Company Number: PHHY2008FR32690

PATIENT
  Sex: Female
  Weight: 63 kg

DRUGS (3)
  1. GLEEVEC [Interacting]
     Indication: CHRONIC MYELOID LEUKAEMIA
     Dosage: UNK
  2. NOROXIN [Interacting]
     Indication: URINARY TRACT INFECTION
     Dosage: 2 DF DAILY
     Dates: start: 20081206, end: 20081211
  3. SOLU-MEDROL [Suspect]
     Indication: MULTIPLE SCLEROSIS

REACTIONS (5)
  - APHTHOUS STOMATITIS [None]
  - DRUG INTERACTION [None]
  - DRY SKIN [None]
  - LIP HAEMORRHAGE [None]
  - URINARY TRACT INFECTION [None]
